FAERS Safety Report 20728557 (Version 2)
Quarter: 2022Q2

REPORT INFORMATION
  Report Type: Report from Study
  Country: FR (occurrence: FR)
  Receive Date: 20220420
  Receipt Date: 20220429
  Transmission Date: 20220720
  Serious: Yes (Hospitalization, Other)
  Sender: FDA-Public Use
  Company Number: FR-SERVIER-S22003923

PATIENT

DRUGS (10)
  1. PEGASPARGASE [Suspect]
     Active Substance: PEGASPARGASE
     Indication: Acute lymphocytic leukaemia
     Dosage: 3550 IU, D15
     Route: 042
     Dates: start: 20220316, end: 20220316
  2. PEGASPARGASE [Suspect]
     Active Substance: PEGASPARGASE
     Dosage: 150 IU ON D43
     Route: 042
     Dates: start: 20220418, end: 20220418
  3. CYCLOPHOSPHAMIDE [Suspect]
     Active Substance: CYCLOPHOSPHAMIDE
     Indication: Acute lymphocytic leukaemia
     Dosage: 1410 MG, D1, D29
     Route: 042
     Dates: start: 20220302, end: 20220404
  4. MERCAPTOPURINE [Suspect]
     Active Substance: MERCAPTOPURINE
     Indication: Acute lymphocytic leukaemia
     Dosage: 84 MG, D1 TO D14, D29 TO D42
     Route: 048
     Dates: start: 20220302, end: 20220417
  5. CYTARABINE [Suspect]
     Active Substance: CYTARABINE
     Indication: Acute lymphocytic leukaemia
     Dosage: 106 MG, D3 TO D6, D10 TO D13, D31 TO D34, D38 TO D41
     Route: 042
     Dates: start: 20220304, end: 20220416
  6. CYTARABINE [Suspect]
     Active Substance: CYTARABINE
     Dosage: 30 MG, D3, D31
     Route: 037
     Dates: start: 20220304, end: 20220406
  7. METHOTREXATE [Suspect]
     Active Substance: METHOTREXATE
     Indication: Acute lymphocytic leukaemia
     Dosage: 15 MG ON D3 AND D31
     Route: 037
     Dates: start: 20220304, end: 20220406
  8. HYDROCORTISONE [Suspect]
     Active Substance: HYDROCORTISONE
     Indication: Acute lymphocytic leukaemia
     Dosage: 15 MG, D3, D31
     Route: 037
     Dates: start: 20220304, end: 20220406
  9. VINCRISTINE [Concomitant]
     Active Substance: VINCRISTINE
     Indication: Acute lymphocytic leukaemia
     Dosage: 2 MG ON D15, D22, D43, AND D50
     Route: 042
     Dates: start: 20220316
  10. TINZAPARIN [Concomitant]
     Active Substance: TINZAPARIN
     Indication: Thrombophlebitis
     Dosage: 8000 IU, UNKNOWN
     Route: 058
     Dates: start: 20220316

REACTIONS (2)
  - Infection [Recovered/Resolved]
  - Hypersensitivity [Recovered/Resolved]

NARRATIVE: CASE EVENT DATE: 20220328
